FAERS Safety Report 5223669-0 (Version None)
Quarter: 2007Q1

REPORT INFORMATION
  Report Type: 
  Country: None (occurrence: None)
  Receive Date: 20070130
  Receipt Date: 20070117
  Transmission Date: 20070707
  Serious: Yes (Hospitalization)
  Sender: FDA-Public Use
  Company Number: HQWYE990113DEC06

PATIENT
  Sex: Male
  Weight: 85 kg

DRUGS (5)
  1. SIROLIMUS [Suspect]
     Indication: PROPHYLAXIS AGAINST TRANSPLANT REJECTION
     Dosage: UNSPECIFIED
     Route: 048
     Dates: start: 20051018
  2. HYDROCHLOROTHIAZIDE [Concomitant]
     Dosage: UNKNOWN
     Route: 065
     Dates: start: 20051026
  3. FLUVASTATIN [Concomitant]
     Dosage: UNKNOWN
     Route: 065
  4. LAMIVUDINE [Concomitant]
     Dosage: UNKNOWN
     Route: 065
  5. ALLOPURINOL SODIUM [Concomitant]
     Dosage: UNKNOWN
     Route: 065

REACTIONS (2)
  - RENAL FAILURE [None]
  - URINARY TRACT INFECTION [None]
